FAERS Safety Report 11791994 (Version 1)
Quarter: 2015Q4

REPORT INFORMATION
  Report Type: Spontaneous
  Country: US (occurrence: US)
  Receive Date: 20151201
  Receipt Date: 20151201
  Transmission Date: 20160305
  Serious: No
  Sender: FDA-Public Use
  Company Number: US-PFIZER INC-2015412936

PATIENT
  Age: 66 Year
  Sex: Female
  Weight: 67.13 kg

DRUGS (1)
  1. GLYSET [Suspect]
     Active Substance: MIGLITOL
     Indication: DIABETES MELLITUS
     Dosage: 25 MG, 3X/DAY (BEFORE MEALS)
     Dates: start: 20151125

REACTIONS (3)
  - Dry mouth [Not Recovered/Not Resolved]
  - Blood glucose abnormal [Not Recovered/Not Resolved]
  - Extra dose administered [Unknown]

NARRATIVE: CASE EVENT DATE: 20151125
